FAERS Safety Report 8961702 (Version 1)
Quarter: 2012Q4

REPORT INFORMATION
  Report Type: 
  Country: CO (occurrence: CO)
  Receive Date: 20121213
  Receipt Date: 20121213
  Transmission Date: 20130627
  Serious: Yes (Death)
  Sender: FDA-Public Use
  Company Number: PHHY2012CO114530

PATIENT
  Age: 29 Year
  Sex: Male

DRUGS (1)
  1. TASIGNA [Suspect]
     Indication: CHRONIC MYELOID LEUKAEMIA
     Dosage: 2 capsules, daily
     Route: 048
     Dates: start: 20120717, end: 20121110

REACTIONS (1)
  - Cardio-respiratory arrest [Fatal]
